FAERS Safety Report 8607875-0 (Version None)
Quarter: 2012Q3

REPORT INFORMATION
  Report Type: 
  Country: None (occurrence: None)
  Receive Date: 20120821
  Receipt Date: 20110805
  Transmission Date: 20120928
  Serious: No
  Sender: FDA-Public Use
  Company Number: US-MYLANLABS-2011S1016357

PATIENT
  Age: 66 Year
  Sex: Female
  Weight: 83.01 kg

DRUGS (8)
  1. MERCAPTOPURINE [Suspect]
     Indication: CROHN'S DISEASE
     Route: 048
     Dates: start: 20100801, end: 20100301
  2. METOPROLOL SUCCINATE [Suspect]
     Indication: BLOOD PRESSURE INCREASED
     Route: 048
     Dates: start: 20060101, end: 20110601
  3. OMEPRAZOLE [Concomitant]
     Indication: GASTROOESOPHAGEAL REFLUX DISEASE
     Dates: start: 20000101
  4. MERCAPTOPURINE [Suspect]
     Route: 048
     Dates: start: 20110301, end: 20110601
  5. MERCAPTOPURINE [Suspect]
     Route: 048
     Dates: start: 20110601
  6. SIMVASTATIN [Concomitant]
     Indication: BLOOD CHOLESTEROL INCREASED
     Dates: start: 20060101
  7. AMITRIPTYLINE HCL [Concomitant]
     Indication: ANXIETY
     Dates: start: 20090101
  8. LISINOPRIL [Concomitant]
     Indication: BLOOD PRESSURE INCREASED
     Dates: start: 20060101

REACTIONS (3)
  - RASH [None]
  - DIARRHOEA [None]
  - DIPLOPIA [None]
